FAERS Safety Report 5470605-8 (Version None)
Quarter: 2007Q3

REPORT INFORMATION
  Report Type: 
  Country: None (occurrence: None)
  Receive Date: 20070927
  Receipt Date: 20070927
  Transmission Date: 20080115
  Serious: No
  Sender: FDA-Public Use
  Company Number: None

PATIENT
  Age: 42 Year
  Sex: Female
  Weight: 64.4108 kg

DRUGS (2)
  1. EFFEXOR [Suspect]
     Indication: ACUTE PSYCHOSIS
     Dosage: 37.5 1 TIME PER DAY PO
     Route: 048
     Dates: start: 20060629, end: 20070401
  2. ROZEREM [Suspect]
     Indication: INSOMNIA
     Dosage: 8 MG 1 PER DAY PO
     Route: 048
     Dates: start: 20061002, end: 20070401

REACTIONS (4)
  - ANXIETY [None]
  - DIABETES MELLITUS [None]
  - JAUNDICE [None]
  - NEUROPATHY PERIPHERAL [None]
